FAERS Safety Report 17142433 (Version 10)
Quarter: 2021Q2

REPORT INFORMATION
  Report Type: Spontaneous
  Country: US (occurrence: US)
  Receive Date: 20191211
  Receipt Date: 20210423
  Transmission Date: 20210716
  Serious: No
  Sender: FDA-Public Use
  Company Number: US-EISAI MEDICAL RESEARCH-EC-2019-066621

PATIENT
  Age: 82 Year
  Sex: Male

DRUGS (17)
  1. FYCOMPA [Suspect]
     Active Substance: PERAMPANEL
     Dosage: MISSED ONE DOSE 5/22/2020
     Route: 048
     Dates: start: 20200221
  2. APTIOM [Suspect]
     Active Substance: ESLICARBAZEPINE ACETATE
     Dosage: DOSAGE AND FREQUENCY UNKNOWN; SLOW UPTITRATION
  3. DILANTIN [Concomitant]
     Active Substance: PHENYTOIN
     Route: 048
     Dates: end: 2020
  4. FYCOMPA [Suspect]
     Active Substance: PERAMPANEL
     Route: 048
     Dates: start: 20191201, end: 20191207
  5. FYCOMPA [Suspect]
     Active Substance: PERAMPANEL
     Route: 048
     Dates: start: 20191208, end: 20200206
  6. APTIOM [Suspect]
     Active Substance: ESLICARBAZEPINE ACETATE
     Dosage: DOSAGE AND FREQUENCY UNKNOWN; SLOW DOWN TITRATION
  7. KEPPRA [Suspect]
     Active Substance: LEVETIRACETAM
     Indication: PRODUCT USED FOR UNKNOWN INDICATION
     Dates: end: 2020
  8. FYCOMPA [Suspect]
     Active Substance: PERAMPANEL
     Route: 048
     Dates: start: 20200207, end: 20200220
  9. DILANTIN [Concomitant]
     Active Substance: PHENYTOIN
     Indication: PRODUCT USED FOR UNKNOWN INDICATION
     Route: 048
  10. APTIOM [Suspect]
     Active Substance: ESLICARBAZEPINE ACETATE
     Indication: PRODUCT USED FOR UNKNOWN INDICATION
  11. APTIOM [Suspect]
     Active Substance: ESLICARBAZEPINE ACETATE
  12. DILANTIN [Concomitant]
     Active Substance: PHENYTOIN
     Route: 048
  13. FYCOMPA [Suspect]
     Active Substance: PERAMPANEL
     Indication: PARTIAL SEIZURES
     Route: 048
     Dates: start: 20191123, end: 20191130
  14. APTIOM [Suspect]
     Active Substance: ESLICARBAZEPINE ACETATE
  15. KEPPRA [Suspect]
     Active Substance: LEVETIRACETAM
     Dates: start: 2020
  16. APTIOM [Suspect]
     Active Substance: ESLICARBAZEPINE ACETATE
  17. KEPPRA [Suspect]
     Active Substance: LEVETIRACETAM
     Dates: start: 2020, end: 2020

REACTIONS (6)
  - Balance disorder [Not Recovered/Not Resolved]
  - Seizure [Unknown]
  - Fall [Not Recovered/Not Resolved]
  - Insomnia [Unknown]
  - Amnesia [Not Recovered/Not Resolved]
  - Epileptic aura [Unknown]

NARRATIVE: CASE EVENT DATE: 2020
